FAERS Safety Report 5627913-7 (Version None)
Quarter: 2008Q1

REPORT INFORMATION
  Report Type: 
  Country: None (occurrence: None)
  Receive Date: 20080215
  Receipt Date: 20080204
  Transmission Date: 20080703
  Serious: Yes (Hospitalization)
  Sender: FDA-Public Use
  Company Number: US-JNJFOC-20080201190

PATIENT
  Sex: Female
  Weight: 102.7 kg

DRUGS (2)
  1. ORTHO EVRA [Suspect]
     Indication: DRUG USE FOR UNKNOWN INDICATION
     Route: 062
  2. CLONIDINE [Concomitant]
     Indication: HYPERTENSION

REACTIONS (2)
  - PULMONARY CAVITATION [None]
  - PULMONARY EMBOLISM [None]
